FAERS Safety Report 12140991 (Version 2)
Quarter: 2017Q1

REPORT INFORMATION
  Report Type: Spontaneous
  Country: US (occurrence: US)
  Receive Date: 20160303
  Receipt Date: 20170106
  Transmission Date: 20170428
  Serious: Yes (Other)
  Sender: FDA-Public Use
  Company Number: US-ELI_LILLY_AND_COMPANY-US201602009358

PATIENT
  Sex: Female

DRUGS (3)
  1. CYMBALTA [Suspect]
     Active Substance: DULOXETINE HYDROCHLORIDE
     Indication: DEPRESSION
     Dosage: UNK, UNKNOWN
     Route: 048
     Dates: end: 2014
  2. CYMBALTA [Suspect]
     Active Substance: DULOXETINE HYDROCHLORIDE
     Indication: PAIN
     Dosage: UNK
     Dates: start: 2012
  3. CYMBALTA [Suspect]
     Active Substance: DULOXETINE HYDROCHLORIDE
     Dosage: 60 MG, QD
     Route: 048

REACTIONS (11)
  - Suicidal ideation [Unknown]
  - Affect lability [Unknown]
  - Headache [Unknown]
  - Vertigo [Unknown]
  - Agitation [Unknown]
  - Withdrawal syndrome [Unknown]
  - Confusional state [Unknown]
  - Nightmare [Unknown]
  - Lethargy [Unknown]
  - Dysphoria [Unknown]
  - Dizziness [Unknown]
